FAERS Safety Report 8398337-7 (Version None)
Quarter: 2012Q2

REPORT INFORMATION
  Report Type: 
  Country: None (occurrence: None)
  Receive Date: 20120531
  Receipt Date: 20120525
  Transmission Date: 20120825
  Serious: Yes (Other)
  Sender: FDA-Public Use
  Company Number: FR-PFIZER INC-2012126587

PATIENT
  Age: 42 Year
  Sex: Female

DRUGS (6)
  1. SOLU-MEDROL [Suspect]
     Indication: GRAFT VERSUS HOST DISEASE IN SKIN
     Dosage: 100 MG, 1X/DAY
     Route: 042
     Dates: start: 20120217
  2. SOLU-MEDROL [Suspect]
     Indication: GRAFT VERSUS HOST DISEASE IN LIVER
  3. SANDIMMUNE [Concomitant]
     Indication: GRAFT VERSUS HOST DISEASE IN SKIN
  4. SANDIMMUNE [Concomitant]
     Indication: GRAFT VERSUS HOST DISEASE IN LIVER
     Dosage: 125 MG, 1X/DAY
     Route: 042
     Dates: start: 20120224, end: 20120307
  5. LEVOTHYROXINE SODIUM [Concomitant]
     Dosage: UNK UG, UNK
  6. INTRON A [Concomitant]
     Dosage: 3 MIU, 1XDAY
     Route: 058
     Dates: start: 20120128, end: 20120212

REACTIONS (4)
  - MENTAL DISORDER [None]
  - AGITATION [None]
  - GRAFT VERSUS HOST DISEASE [None]
  - AGGRESSION [None]
